FAERS Safety Report 8087447-X (Version None)
Quarter: 2012Q1

REPORT INFORMATION
  Report Type: 
  Country: None (occurrence: None)
  Receive Date: 20120128
  Receipt Date: 20110520
  Transmission Date: 20120608
  Serious: No
  Sender: FDA-Public Use
  Company Number: US-ABBOTT-11P-163-0728060-00

PATIENT
  Sex: Female
  Weight: 63.56 kg

DRUGS (5)
  1. HUMIRA [Suspect]
     Indication: RHEUMATOID ARTHRITIS
     Dates: start: 20110223
  2. XANAX [Concomitant]
     Indication: ANXIETY
  3. HYDROCODONE BITARTRATE [Concomitant]
     Indication: RHEUMATOID ARTHRITIS
     Dosage: 1/2 TAB EVERY OTHER DAY AT NIGHT
  4. CLONIDINE [Concomitant]
     Indication: HYPERTENSION
  5. BENICAR [Concomitant]
     Indication: HYPERTENSION

REACTIONS (8)
  - SKIN EXFOLIATION [None]
  - URINE FLOW DECREASED [None]
  - DRY SKIN [None]
  - HYPOAESTHESIA ORAL [None]
  - FLUID RETENTION [None]
  - PHOTOSENSITIVITY REACTION [None]
  - DYSPNOEA [None]
  - PRURITUS [None]
